FAERS Safety Report 8295820-X (Version None)
Quarter: 2012Q2

REPORT INFORMATION
  Report Type: 
  Country: None (occurrence: None)
  Receive Date: 20120418
  Receipt Date: 20120417
  Transmission Date: 20120825
  Serious: Yes (Death, Other)
  Sender: FDA-Public Use
  Company Number: JP-ABBOTT-12P-087-0910007-00

PATIENT

DRUGS (1)
  1. SEVOFLURANE [Suspect]
     Indication: ANAESTHESIA

REACTIONS (1)
  - HYPERTHERMIA MALIGNANT [None]
